FAERS Safety Report 7012765-3 (Version None)
Quarter: 2010Q3

REPORT INFORMATION
  Report Type: 
  Country: None (occurrence: None)
  Receive Date: 20100924
  Receipt Date: 20100917
  Transmission Date: 20110219
  Serious: Yes (Disabling)
  Sender: FDA-Public Use
  Company Number: A0881689A

PATIENT
  Age: 50 Year
  Sex: Female

DRUGS (4)
  1. ADVAIR DISKUS 100/50 [Suspect]
     Indication: ASTHMA
     Route: 055
     Dates: start: 20100915
  2. VERAMYST [Concomitant]
  3. LODRANE [Concomitant]
  4. PREDNISONE TAB [Concomitant]

REACTIONS (3)
  - ABASIA [None]
  - BONE PAIN [None]
  - MUSCLE CONTRACTIONS INVOLUNTARY [None]
